FAERS Safety Report 8810525 (Version 1)
Quarter: 2012Q4

REPORT INFORMATION
  Report Type: 
  Country: US (occurrence: US)
  Receive Date: 20120927
  Receipt Date: 20120927
  Transmission Date: 20130627
  Serious: No
  Sender: FDA-Public Use
  Company Number: US-BIOGENIDEC-2012BI039154

PATIENT
  Age: 60 Year
  Sex: Male

DRUGS (3)
  1. TYSABRI [Suspect]
     Indication: MULTIPLE SCLEROSIS
     Route: 042
     Dates: start: 20120322
  2. PRESTIQUE [Concomitant]
     Indication: DEPRESSION
  3. ADVIL [Concomitant]
     Indication: MIGRAINE PROPHYLAXIS

REACTIONS (3)
  - Depression [Not Recovered/Not Resolved]
  - Migraine with aura [Recovered/Resolved]
  - Diarrhoea [Recovered/Resolved]
